FAERS Safety Report 12397376 (Version 2)
Quarter: 2016Q2

REPORT INFORMATION
  Report Type: Spontaneous
  Country: US (occurrence: US)
  Receive Date: 20160524
  Receipt Date: 20160610
  Transmission Date: 20160815
  Serious: No
  Sender: FDA-Public Use
  Company Number: US-PFIZER INC-2016272264

PATIENT
  Age: 79 Year
  Sex: Male
  Weight: 79 kg

DRUGS (5)
  1. SUTENT [Suspect]
     Active Substance: SUNITINIB MALATE
     Indication: ANGIOSARCOMA
     Dosage: 25 MG, CYCLIC (2 WEEKS ON/1 WEEK OFF)
     Route: 048
  2. PREDNISONE. [Concomitant]
     Active Substance: PREDNISONE
     Dosage: UNK
  3. CARVIDOL [Concomitant]
     Dosage: UNK
  4. SIMVASTATIN. [Concomitant]
     Active Substance: SIMVASTATIN
     Dosage: UNK
  5. LOSARTAN. [Concomitant]
     Active Substance: LOSARTAN
     Dosage: UNK

REACTIONS (4)
  - White blood cell count decreased [Unknown]
  - Product use issue [Unknown]
  - Red blood cell count decreased [Unknown]
  - Platelet count decreased [Unknown]
